FAERS Safety Report 23870764 (Version 2)
Quarter: 2024Q2

REPORT INFORMATION
  Report Type: Spontaneous
  Country: ES (occurrence: ES)
  Receive Date: 20240518
  Receipt Date: 20240610
  Transmission Date: 20240715
  Serious: Yes (Life-Threatening, Hospitalization)
  Sender: FDA-Public Use
  Company Number: ES-TEVA-VS-3197625

PATIENT
  Age: 16 Year
  Sex: Female

DRUGS (9)
  1. SERTRALINE [Suspect]
     Active Substance: SERTRALINE HYDROCHLORIDE
     Indication: Trisomy 21
     Route: 048
     Dates: start: 2021
  2. PROPOFOL [Concomitant]
     Active Substance: PROPOFOL
     Indication: Induction of anaesthesia
     Route: 065
  3. ATROPINE [Suspect]
     Active Substance: ATROPINE\ATROPINE SULFATE
     Indication: Extrasystoles
     Route: 065
     Dates: start: 2023
  4. SUCCINYLCHOLINE [Concomitant]
     Active Substance: SUCCINYLCHOLINE
     Indication: Muscle relaxant therapy
     Route: 065
  5. LORAZEPAM [Concomitant]
     Active Substance: LORAZEPAM
     Indication: Trisomy 21
     Route: 048
     Dates: start: 2021
  6. LORAZEPAM [Concomitant]
     Active Substance: LORAZEPAM
     Indication: Trisomy 21
     Route: 048
     Dates: start: 2021
  7. THIOPENTAL [Concomitant]
     Active Substance: THIOPENTAL
     Indication: Induction of anaesthesia
     Route: 065
  8. FLUOXETINE [Concomitant]
     Active Substance: FLUOXETINE HYDROCHLORIDE
     Indication: Trisomy 21
     Route: 048
     Dates: start: 2021
  9. ARIPIPRAZOLE [Suspect]
     Active Substance: ARIPIPRAZOLE
     Indication: Trisomy 21
     Route: 048
     Dates: start: 2021

REACTIONS (8)
  - Therapy non-responder [Unknown]
  - Stress cardiomyopathy [Recovered/Resolved]
  - Hypersomnia [Unknown]
  - Hypertensive crisis [Unknown]
  - Hyperhidrosis [Unknown]
  - Extrapyramidal disorder [Unknown]
  - Acute pulmonary oedema [Unknown]
  - Respiratory failure [Unknown]

NARRATIVE: CASE EVENT DATE: 20230101
